FAERS Safety Report 11749201 (Version 2)
Quarter: 2015Q4

REPORT INFORMATION
  Report Type: Spontaneous
  Country: US (occurrence: US)
  Receive Date: 20151118
  Receipt Date: 20151130
  Transmission Date: 20160304
  Serious: Yes (Hospitalization)
  Sender: FDA-Public Use
  Company Number: US-BEH-2015055789

PATIENT
  Sex: Female
  Weight: 108 kg

DRUGS (36)
  1. PRIVIGEN [Suspect]
     Active Substance: HUMAN IMMUNOGLOBULIN G
     Indication: MULTIPLE SCLEROSIS
     Dosage: DAILY FOR 3 DAYS ONCE A MONTH
     Route: 042
     Dates: start: 20150610
  2. ZANAFLEX [Concomitant]
     Active Substance: TIZANIDINE HYDROCHLORIDE
  3. RIZATRIPTAN. [Concomitant]
     Active Substance: RIZATRIPTAN
  4. MUPIROCIN. [Concomitant]
     Active Substance: MUPIROCIN
  5. PROMETHAZINE [Concomitant]
     Active Substance: PROMETHAZINE\PROMETHAZINE HYDROCHLORIDE
  6. POTASSIUM CHLORIDE. [Concomitant]
     Active Substance: POTASSIUM CHLORIDE
  7. TIZANIDINE HCL [Concomitant]
     Active Substance: TIZANIDINE HYDROCHLORIDE
  8. VYTORIN [Concomitant]
     Active Substance: EZETIMIBE\SIMVASTATIN
  9. KLONOPIN [Concomitant]
     Active Substance: CLONAZEPAM
  10. BYSTOLIC [Concomitant]
     Active Substance: NEBIVOLOL HYDROCHLORIDE
  11. LEVOTHYROXINE. [Concomitant]
     Active Substance: LEVOTHYROXINE
  12. TOPAMAX [Concomitant]
     Active Substance: TOPIRAMATE
  13. DIPHENHYDRAMINE. [Concomitant]
     Active Substance: DIPHENHYDRAMINE
  14. HEPARIN [Concomitant]
     Active Substance: HEPARIN SODIUM
  15. EPIPEN [Concomitant]
     Active Substance: EPINEPHRINE
  16. LASIX [Concomitant]
     Active Substance: FUROSEMIDE
  17. ESOMEPRAZOLE [Concomitant]
     Active Substance: ESOMEPRAZOLE
  18. HYDROCHLOROTHIAZIDE. [Concomitant]
     Active Substance: HYDROCHLOROTHIAZIDE
  19. ACETAMINOPHEN. [Concomitant]
     Active Substance: ACETAMINOPHEN
  20. SODIUM CHLORIDE. [Concomitant]
     Active Substance: SODIUM CHLORIDE
  21. KLONOPIN [Concomitant]
     Active Substance: CLONAZEPAM
  22. RESTORIL [Concomitant]
     Active Substance: TEMAZEPAM
  23. PRIVIGEN [Suspect]
     Active Substance: HUMAN IMMUNOGLOBULIN G
     Route: 042
     Dates: start: 20150610
  24. NEXIUM [Concomitant]
     Active Substance: ESOMEPRAZOLE MAGNESIUM
  25. CLONAZEPAM. [Concomitant]
     Active Substance: CLONAZEPAM
  26. VYTORIN [Concomitant]
     Active Substance: EZETIMIBE\SIMVASTATIN
  27. LIDOCAINE. [Concomitant]
     Active Substance: LIDOCAINE
  28. ROPINIROLE HCL [Concomitant]
     Active Substance: ROPINIROLE HYDROCHLORIDE
  29. HYDROMORPHONE ER [Concomitant]
     Active Substance: HYDROMORPHONE HYDROCHLORIDE
  30. HYDROXYZINE [Concomitant]
     Active Substance: HYDROXYZINE\HYDROXYZINE HYDROCHLORIDE
  31. LYRICA [Concomitant]
     Active Substance: PREGABALIN
  32. VIMPAT [Concomitant]
     Active Substance: LACOSAMIDE
  33. HYDROCHLOROTHIAZIDE. [Concomitant]
     Active Substance: HYDROCHLOROTHIAZIDE
  34. TYSABRI [Concomitant]
     Active Substance: NATALIZUMAB
  35. VOLTAREN [Concomitant]
     Active Substance: DICLOFENAC SODIUM
  36. BUSPAR [Concomitant]
     Active Substance: BUSPIRONE HYDROCHLORIDE

REACTIONS (2)
  - Condition aggravated [Unknown]
  - Hand fracture [Unknown]
